FAERS Safety Report 9761349 (Version 1)
Quarter: 2013Q1

REPORT INFORMATION
  Report Type: Spontaneous
  Country: GR (occurrence: None)
  Receive Date: 20130327
  Receipt Date: 20130327
  Transmission Date: 20140127
  Serious: Yes (Other)
  Sender: FDA-Public Use
  Company Number: 2013-1204

PATIENT
  Sex: 0

DRUGS (1)
  1. BOTULINUM TOXIN TYPE A [Suspect]
     Indication: MUSCLE SPASTICITY

REACTIONS (18)
  - Convulsion [None]
  - Hypertonia [None]
  - Dystonia [None]
  - Dysphagia [None]
  - Speech disorder [None]
  - Constipation [None]
  - Vomiting [None]
  - Decreased appetite [None]
  - Pain [None]
  - Restlessness [None]
  - Strabismus [None]
  - Hyperhidrosis [None]
  - Pallor [None]
  - Sleep disorder [None]
  - Lethargy [None]
  - Salivary hypersecretion [None]
  - Asthenia [None]
  - Influenza like illness [None]
